FAERS Safety Report 5646422-2 (Version None)
Quarter: 2008Q1

REPORT INFORMATION
  Report Type: 
  Country: None (occurrence: None)
  Receive Date: 20080228
  Receipt Date: 20080212
  Transmission Date: 20080703
  Serious: Yes (Hospitalization)
  Sender: FDA-Public Use
  Company Number: 310001M08DEU

PATIENT
  Sex: Female

DRUGS (2)
  1. GONAL-F [Suspect]
     Dosage: 2 IN
     Dates: start: 20080110, end: 20080112
  2. GONAL-F [Suspect]
     Dosage: 2 IN
     Dates: start: 20080101

REACTIONS (2)
  - HYPERSENSITIVITY [None]
  - SKIN TEST POSITIVE [None]
